FAERS Safety Report 26120917 (Version 1)
Quarter: 2025Q4

REPORT INFORMATION
  Report Type: Spontaneous
  Country: US (occurrence: US)
  Receive Date: 20251204
  Receipt Date: 20251204
  Transmission Date: 20260117
  Serious: No
  Sender: SANOFI AVENTIS
  Company Number: US-SA-2025SA362050

PATIENT
  Age: 92 Year
  Sex: Male
  Weight: 86.36 kg

DRUGS (10)
  1. DUPIXENT [Suspect]
     Active Substance: DUPILUMAB
     Dosage: 300 MG, QOW
     Route: 058
     Dates: start: 202511
  2. GABAPENTIN [Concomitant]
     Active Substance: GABAPENTIN
  3. POTASSIUM [Concomitant]
     Active Substance: POTASSIUM
  4. FUROSEMIDE [Concomitant]
     Active Substance: FUROSEMIDE
  5. ELIQUIS [Concomitant]
     Active Substance: APIXABAN
  6. TADALAFIL [Concomitant]
     Active Substance: TADALAFIL
  7. LEVOTHYROXINE SODIUM [Concomitant]
     Active Substance: LEVOTHYROXINE SODIUM
  8. TAMSULOSIN HYDROCHLORIDE [Concomitant]
     Active Substance: TAMSULOSIN HYDROCHLORIDE
  9. MINERALS\VITAMINS [Concomitant]
     Active Substance: MINERALS\VITAMINS
  10. ROPINIROLE [Concomitant]
     Active Substance: ROPINIROLE
     Dosage: UNK

REACTIONS (2)
  - Dry skin [Unknown]
  - Pruritus [Unknown]

NARRATIVE: CASE EVENT DATE: 20251101
